FAERS Safety Report 9672084 (Version 3)
Quarter: 2013Q4

REPORT INFORMATION
  Report Type: Spontaneous
  Country: ES (occurrence: ES)
  Receive Date: 20131106
  Receipt Date: 20131119
  Transmission Date: 20140711
  Serious: Yes (Other)
  Sender: FDA-Public Use
  Company Number: ES-PFIZER INC-2013315314

PATIENT
  Age: 57 Year
  Sex: Male

DRUGS (6)
  1. LEVOFLOXACIN [Suspect]
     Indication: MYCOBACTERIAL INFECTION
     Dosage: UNK
  2. AZITHROMYCIN [Suspect]
     Indication: MYCOBACTERIAL INFECTION
     Dosage: UNK
  3. ETHAMBUTOL [Suspect]
     Indication: MYCOBACTERIAL INFECTION
     Dosage: UNK
  4. ISONIAZID [Suspect]
     Indication: MYCOBACTERIAL INFECTION
     Dosage: UNK
  5. PYRAZINAMIDE [Suspect]
     Indication: MYCOBACTERIAL INFECTION
     Dosage: UNK
  6. RIFAMPICIN [Suspect]
     Indication: MYCOBACTERIAL INFECTION
     Dosage: UNK

REACTIONS (5)
  - Acute hepatic failure [Recovering/Resolving]
  - Hepatotoxicity [Recovering/Resolving]
  - Skin lesion [Recovering/Resolving]
  - Pyrexia [Recovered/Resolved]
  - Weight decreased [Recovering/Resolving]
